FAERS Safety Report 24226025 (Version 1)
Quarter: 2024Q3

REPORT INFORMATION
  Report Type: Spontaneous
  Country: FR (occurrence: FR)
  Receive Date: 20240820
  Receipt Date: 20240820
  Transmission Date: 20241017
  Serious: Yes (Hospitalization, Other)
  Sender: AUROBINDO
  Company Number: FR-AFSSAPS-GR2024001006

PATIENT
  Age: 60 Year
  Sex: Male
  Weight: 87 kg

DRUGS (2)
  1. DICLOFENAC [Suspect]
     Active Substance: DICLOFENAC
     Indication: Angina pectoris
     Dosage: 50 MILLIGRAM, ONCE A DAY (1 ? 2/J)
     Route: 048
     Dates: start: 20240708, end: 20240710
  2. IBUPROFEN [Suspect]
     Active Substance: IBUPROFEN
     Indication: Angina pectoris
     Dosage: 1 DOSAGE FORM, ONCE A DAY
     Route: 048
     Dates: start: 20240711, end: 20240711

REACTIONS (3)
  - Cellulitis streptococcal [Recovering/Resolving]
  - Mediastinitis [Recovering/Resolving]
  - Parapharyngeal space infection [Recovering/Resolving]

NARRATIVE: CASE EVENT DATE: 20240711
